FAERS Safety Report 15479906 (Version 1)
Quarter: 2018Q4

REPORT INFORMATION
  Report Type: Spontaneous
  Country: ES (occurrence: ES)
  Receive Date: 20181009
  Receipt Date: 20181009
  Transmission Date: 20190205
  Serious: Yes (Other)
  Sender: FDA-Public Use
  Company Number: ES-MYLANLABS-2018M1074394

PATIENT
  Age: 40 Year
  Sex: Male

DRUGS (20)
  1. ETANERCEPT [Suspect]
     Active Substance: ETANERCEPT
     Indication: RETINAL VASCULITIS
  2. METHOTREXATE. [Suspect]
     Active Substance: METHOTREXATE
     Indication: RETINAL VASCULITIS
  3. INFLIXIMAB [Suspect]
     Active Substance: INFLIXIMAB
     Indication: IRIDOCYCLITIS
     Dosage: UNK
  4. CYCLOSPORINE. [Suspect]
     Active Substance: CYCLOSPORINE
     Indication: PSORIATIC ARTHROPATHY
  5. ADALIMUMAB [Suspect]
     Active Substance: ADALIMUMAB
     Indication: RETINAL VASCULITIS
  6. METHOTREXATE. [Suspect]
     Active Substance: METHOTREXATE
     Indication: PSORIATIC ARTHROPATHY
  7. METHOTREXATE. [Suspect]
     Active Substance: METHOTREXATE
     Indication: IRIDOCYCLITIS
  8. INFLIXIMAB [Suspect]
     Active Substance: INFLIXIMAB
     Indication: DISEASE RECURRENCE
  9. ETANERCEPT [Suspect]
     Active Substance: ETANERCEPT
     Indication: PSORIATIC ARTHROPATHY
  10. ETANERCEPT [Suspect]
     Active Substance: ETANERCEPT
     Indication: IRIDOCYCLITIS
  11. ADALIMUMAB [Suspect]
     Active Substance: ADALIMUMAB
     Indication: IRIDOCYCLITIS
     Dosage: UNK
  12. ADALIMUMAB [Suspect]
     Active Substance: ADALIMUMAB
     Indication: PSORIATIC ARTHROPATHY
  13. ETANERCEPT [Suspect]
     Active Substance: ETANERCEPT
     Indication: DISEASE RECURRENCE
     Dosage: UNK
  14. METHOTREXATE. [Suspect]
     Active Substance: METHOTREXATE
     Indication: DISEASE RECURRENCE
     Dosage: UNK
  15. INFLIXIMAB [Suspect]
     Active Substance: INFLIXIMAB
     Indication: PSORIATIC ARTHROPATHY
  16. CYCLOSPORINE. [Suspect]
     Active Substance: CYCLOSPORINE
     Indication: RETINAL VASCULITIS
  17. CYCLOSPORINE. [Suspect]
     Active Substance: CYCLOSPORINE
     Indication: DISEASE RECURRENCE
  18. ADALIMUMAB [Suspect]
     Active Substance: ADALIMUMAB
     Indication: DISEASE RECURRENCE
  19. INFLIXIMAB [Suspect]
     Active Substance: INFLIXIMAB
     Indication: RETINAL VASCULITIS
  20. CYCLOSPORINE. [Suspect]
     Active Substance: CYCLOSPORINE
     Indication: IRIDOCYCLITIS
     Dosage: UNK

REACTIONS (1)
  - Drug resistance [Unknown]
